FAERS Safety Report 5132636-7 (Version None)
Quarter: 2006Q4

REPORT INFORMATION
  Report Type: 
  Country: None (occurrence: None)
  Receive Date: 20061017
  Receipt Date: 20060921
  Transmission Date: 20070319
  Serious: Yes (Other)
  Sender: FDA-Public Use
  Company Number: GXKR2006ES05663

PATIENT
  Age: 39 Year
  Sex: Female

DRUGS (6)
  1. DEXAMETHASONE [Suspect]
     Indication: INVESTIGATION
     Dosage: 0.25 MG, ONCE/SINGLE, ORAL
     Route: 048
  2. ACTOCORTINA(HYDROCORTISONE SODIUM PHOSPHATE) [Suspect]
     Indication: BRONCHOSPASM
     Dosage: 100 MG, INTRAVENOUS
     Route: 042
  3. URBASON(METHYLPREDNISOLONE SODIUM SUCCINATE) [Suspect]
     Indication: ALLERGENIC DESENSITISATION PROCEDURE
     Dosage: SEE IMAGE
     Route: 042
  4. POLARAMINE [Concomitant]
  5. VENTOLIN [Concomitant]
  6. VOLUME EXPANDERS [Concomitant]

REACTIONS (9)
  - ASTHMA [None]
  - BRONCHOSPASM [None]
  - CONDITION AGGRAVATED [None]
  - DIALYSIS [None]
  - DRUG HYPERSENSITIVITY [None]
  - FORCED EXPIRATORY VOLUME DECREASED [None]
  - HYPERSENSITIVITY [None]
  - HYPOTENSION [None]
  - THERAPY NON-RESPONDER [None]
